FAERS Safety Report 8839735 (Version 3)
Quarter: 2012Q4

REPORT INFORMATION
  Report Type: 
  Country: JP (occurrence: JP)
  Receive Date: 20121015
  Receipt Date: 20121112
  Transmission Date: 20130627
  Serious: Yes (Hospitalization)
  Sender: FDA-Public Use
  Company Number: JP-NOVOPROD-361488

PATIENT
  Age: 68 Year
  Sex: Female
  Weight: 76 kg

DRUGS (13)
  1. VICTOZA HIKACHU INJECTION [Suspect]
     Indication: TYPE 2 DIABETES MELLITUS
     Dosage: 0.3 mg, qd
     Route: 058
     Dates: start: 20120823
  2. VICTOZA HIKACHU INJECTION [Suspect]
     Dosage: 0.6 mg, qd
     Route: 058
     Dates: start: 20120831
  3. VICTOZA HIKACHU INJECTION [Suspect]
     Dosage: 0.9 mg, qd
     Route: 058
     Dates: end: 20120926
  4. FLUVASTATIN SODIUM [Interacting]
     Indication: DYSLIPIDAEMIA
     Dosage: 10 mg, qd
     Route: 048
     Dates: start: 20081125
  5. FLUVASTATIN SODIUM [Interacting]
     Dosage: 10-20 mg/day
     Route: 048
     Dates: start: 20100208, end: 20120925
  6. AMARYL [Concomitant]
     Dosage: 0.5 mg, qd
  7. AMARYL [Concomitant]
     Dosage: 2 mg, qd
     Dates: start: 20100208
  8. AMARYL [Concomitant]
     Dosage: 3 mg, qd
     Dates: start: 20100826
  9. AMARYL [Concomitant]
     Dosage: 2 mg, qd
     Dates: start: 20110721, end: 20120823
  10. CO-DIOVAN [Concomitant]
     Indication: HYPERTENSION
     Dosage: 92.50 mg, bid
     Route: 048
     Dates: start: 20100624
  11. ISOSORBIDE DINITRATE [Concomitant]
     Indication: ANGINA PECTORIS
     Dosage: 40 mg, qd
     Route: 062
     Dates: start: 20080620
  12. GASMOTIN [Concomitant]
     Indication: VOMITING
     Dosage: 15 mg, tid
     Route: 048
     Dates: start: 20120906, end: 20120919
  13. GASMOTIN [Concomitant]
     Indication: NAUSEA

REACTIONS (4)
  - Potentiating drug interaction [Not Recovered/Not Resolved]
  - Rhabdomyolysis [Not Recovered/Not Resolved]
  - Nausea [Recovered/Resolved]
  - Vomiting [Recovered/Resolved]
